FAERS Safety Report 4542235-3 (Version None)
Quarter: 2004Q4

REPORT INFORMATION
  Report Type: 
  Country: None (occurrence: None)
  Receive Date: 20041227
  Receipt Date: 20041220
  Transmission Date: 20050328
  Serious: Yes (Hospitalization, Disabling)
  Sender: FDA-Public Use
  Company Number: HQWYE258229JUL03

PATIENT
  Age: 44 Year
  Sex: Female
  Weight: 59.02 kg

DRUGS (6)
  1. EFFEXOR XR [Suspect]
     Indication: DEPRESSION
     Dosage: 37.5 MG 1X PER 1 DAY, ORAL
     Route: 048
     Dates: start: 20030624, end: 20030630
  2. EFFEXOR XR [Suspect]
     Dosage: 75 MG 1X PER 1 DAY, ORAL
     Route: 048
     Dates: start: 20030701, end: 20030710
  3. EFFEXOR XR [Suspect]
     Dosage: 150 MG 1X PER 1 DAY, ORAL
     Route: 048
     Dates: start: 20030711, end: 20030712
  4. EFFEXOR XR [Suspect]
     Dosage: 75 MG 1X PER 1 DAY, ORAL
     Route: 048
     Dates: start: 20030713, end: 20030701
  5. EFFEXOR XR [Suspect]
     Dosage: OPEN THE CAPSULE AND REMOVED SPHEROIDS TO FURTHER DECREASE THE DOSE
     Dates: start: 20030701, end: 20030715
  6. CELEBREX [Concomitant]

REACTIONS (53)
  - ACCOMMODATION DISORDER [None]
  - ACTIVITIES OF DAILY LIVING IMPAIRED [None]
  - AGITATION [None]
  - ANXIETY [None]
  - BACK PAIN [None]
  - BIPOLAR I DISORDER [None]
  - BIPOLAR II DISORDER [None]
  - CHRONIC FATIGUE SYNDROME [None]
  - COORDINATION ABNORMAL [None]
  - CRYING [None]
  - DECREASED APPETITE [None]
  - DEPERSONALISATION [None]
  - DEPRESSION [None]
  - DIFFICULTY IN WALKING [None]
  - DISTURBANCE IN ATTENTION [None]
  - DIZZINESS [None]
  - DRUG HYPERSENSITIVITY [None]
  - DRUG INEFFECTIVE [None]
  - DRUG WITHDRAWAL SYNDROME [None]
  - DRY MOUTH [None]
  - DYSPNOEA [None]
  - DYSSTASIA [None]
  - FEAR [None]
  - FEELING JITTERY [None]
  - GENERAL PHYSICAL CONDITION [None]
  - HEART RATE INCREASED [None]
  - HOT FLUSH [None]
  - IMPAIRED DRIVING ABILITY [None]
  - INSOMNIA [None]
  - IRRITABLE BOWEL SYNDROME [None]
  - MANIA [None]
  - MEDICATION ERROR [None]
  - MEMORY IMPAIRMENT [None]
  - MENTAL STATUS CHANGES [None]
  - MOTION SICKNESS [None]
  - MUSCLE TIGHTNESS [None]
  - MUSCLE TWITCHING [None]
  - MUSCULAR WEAKNESS [None]
  - MUSCULOSKELETAL STIFFNESS [None]
  - NAUSEA [None]
  - PAIN IN EXTREMITY [None]
  - PANIC ATTACK [None]
  - PARAESTHESIA [None]
  - PERSONALITY CHANGE [None]
  - POLLAKIURIA [None]
  - RESPIRATORY RATE INCREASED [None]
  - RESTLESS LEGS SYNDROME [None]
  - SUICIDAL IDEATION [None]
  - TREMOR [None]
  - VERTIGO [None]
  - VISION BLURRED [None]
  - VISUAL DISTURBANCE [None]
  - WEIGHT DECREASED [None]
